FAERS Safety Report 7034625-4 (Version None)
Quarter: 2010Q4

REPORT INFORMATION
  Report Type: 
  Country: None (occurrence: None)
  Receive Date: 20101008
  Receipt Date: 20100924
  Transmission Date: 20110411
  Serious: Yes (Other)
  Sender: FDA-Public Use
  Company Number: CA-SANOFI-AVENTIS-2010SA057758

PATIENT
  Age: 61 Year
  Sex: Female

DRUGS (4)
  1. SOLOSTAR [Suspect]
     Dates: start: 20080301
  2. LANTUS [Suspect]
     Route: 058
     Dates: start: 20080301
  3. NOVORAPID [Concomitant]
  4. ALL OTHER THERAPEUTIC PRODUCTS [Concomitant]

REACTIONS (2)
  - BLOOD GLUCOSE INCREASED [None]
  - DEVICE MALFUNCTION [None]
